FAERS Safety Report 8591558-X (Version None)
Quarter: 2012Q3

REPORT INFORMATION
  Report Type: 
  Country: None (occurrence: None)
  Receive Date: 20120814
  Receipt Date: 20120810
  Transmission Date: 20120928
  Serious: No
  Sender: FDA-Public Use
  Company Number: US-PFIZER INC-2012195936

PATIENT
  Age: 22 Year
  Sex: Male
  Weight: 92.971 kg

DRUGS (1)
  1. FLECTOR [Suspect]
     Indication: KNEE OPERATION
     Dosage: UNK,2X/DAY
     Route: 062
     Dates: start: 20120501

REACTIONS (3)
  - BLISTER [None]
  - PRODUCT ADHESION ISSUE [None]
  - RASH [None]
